FAERS Safety Report 8115861-2 (Version None)
Quarter: 2011Q4

REPORT INFORMATION
  Report Type: 
  Country: None (occurrence: None)
  Receive Date: 20111227
  Receipt Date: 20111117
  Transmission Date: 20120403
  Serious: Yes (Other)
  Sender: FDA-Public Use
  Company Number: PHHY2011US32028

PATIENT
  Age: 36 Year
  Sex: Female

DRUGS (4)
  1. GILENYA [Suspect]
     Indication: MULTIPLE SCLEROSIS
     Dosage: 0.5 MG, QD, ORAL
     Route: 048
     Dates: start: 20110406
  2. SYNTHROID [Concomitant]
  3. ZANAFLEX [Concomitant]
  4. BENICAR [Concomitant]

REACTIONS (7)
  - VISION BLURRED [None]
  - EYE DISORDER [None]
  - HEADACHE [None]
  - DIARRHOEA [None]
  - MACULAR OEDEMA [None]
  - FEELING JITTERY [None]
  - WHITE BLOOD CELL COUNT DECREASED [None]
